APPROVED DRUG PRODUCT: AMINOCAPROIC ACID
Active Ingredient: AMINOCAPROIC ACID
Strength: 500MG
Dosage Form/Route: TABLET;ORAL
Application: A211629 | Product #001
Applicant: ANI PHARMACEUTICALS INC
Approved: Dec 14, 2020 | RLD: No | RS: No | Type: DISCN